FAERS Safety Report 4639267-3 (Version None)
Quarter: 2005Q2

REPORT INFORMATION
  Report Type: 
  Country: None (occurrence: None)
  Receive Date: 20050418
  Receipt Date: 20050406
  Transmission Date: 20051028
  Serious: Yes (Hospitalization)
  Sender: FDA-Public Use
  Company Number: 2005056182

PATIENT
  Sex: Male

DRUGS (8)
  1. DILANTIN [Suspect]
     Indication: CONVULSION
     Dosage: ORAL
     Route: 048
  2. LEVOTHYROXINE SODIUM [Suspect]
     Indication: HYPOTHYROIDISM
     Dosage: ORAL
     Route: 048
  3. LOTREL [Concomitant]
  4. LAMOTRIGINE [Concomitant]
  5. DIDANOSINE (DIDANOSINE0 [Concomitant]
  6. ASPIRIN [Concomitant]
  7. FAMOTIDINE [Concomitant]
  8. CALCIUM CARBONATE (CALCIUM CARBONATE) [Concomitant]

REACTIONS (6)
  - DEPRESSION [None]
  - DRUG INTERACTION [None]
  - DRUG LEVEL CHANGED [None]
  - ORAL INTAKE REDUCED [None]
  - THYROID DISORDER [None]
  - WEIGHT DECREASED [None]
